FAERS Safety Report 25824945 (Version 2)
Quarter: 2025Q4

REPORT INFORMATION
  Report Type: Spontaneous
  Country: US (occurrence: US)
  Receive Date: 20250919
  Receipt Date: 20251022
  Transmission Date: 20260117
  Serious: No
  Sender: PFIZER
  Company Number: US-PFIZER INC-202500182890

PATIENT
  Age: 84 Year
  Sex: Male
  Weight: 51.71 kg

DRUGS (2)
  1. ELREXFIO [Suspect]
     Active Substance: ELRANATAMAB-BCMM
     Indication: Plasma cell myeloma
     Dosage: 12 MG (RIGHT LOWER QUADRANT OF THE ABDOMEN)
     Route: 058
     Dates: start: 20250909
  2. ELREXFIO [Suspect]
     Active Substance: ELRANATAMAB-BCMM
     Dosage: 32 MG (LEFT LOWER QUADRANT OF THE ABDOMEN)
     Route: 058
     Dates: start: 20250912

REACTIONS (2)
  - Injection site rash [Not Recovered/Not Resolved]
  - Rash [Not Recovered/Not Resolved]
